FAERS Safety Report 7071793-2 (Version None)
Quarter: 2010Q4

REPORT INFORMATION
  Report Type: 
  Country: None (occurrence: None)
  Receive Date: 20101029
  Receipt Date: 20091022
  Transmission Date: 20110411
  Serious: No
  Sender: FDA-Public Use
  Company Number: A0812989A

PATIENT
  Age: 52 Year
  Sex: Female

DRUGS (14)
  1. ADVAIR DISKUS 100/50 [Suspect]
     Indication: ASTHMA
     Dosage: 1PUFF TWICE PER DAY
     Route: 055
     Dates: start: 20040101
  2. METOPROLOL [Concomitant]
  3. CAPTOPRIL [Concomitant]
  4. LOTREL [Concomitant]
  5. LEVOTHYROXINE [Concomitant]
  6. PRAVASTATIN [Concomitant]
  7. ALBUTEROL [Concomitant]
  8. FLONASE [Concomitant]
  9. IBUPROFEN [Concomitant]
  10. CLARITIN [Concomitant]
  11. BACLOFEN [Concomitant]
  12. GLUCOSAMINE [Concomitant]
  13. FISH OIL [Concomitant]
  14. LASIX [Concomitant]

REACTIONS (1)
  - VISION BLURRED [None]
